FAERS Safety Report 7742821-3 (Version None)
Quarter: 2011Q3

REPORT INFORMATION
  Report Type: 
  Country: None (occurrence: None)
  Receive Date: 20110912
  Receipt Date: 20110901
  Transmission Date: 20111222
  Serious: Yes (Life-Threatening, Hospitalization)
  Sender: FDA-Public Use
  Company Number: DE-JNJFOC-20110710274

PATIENT
  Sex: Female
  Weight: 119 kg

DRUGS (12)
  1. SINGULAIR [Concomitant]
     Route: 065
  2. PREDNISOLONE [Concomitant]
     Route: 065
  3. PALEXIA RETARD [Suspect]
     Indication: PRODUCT USED FOR UNKNOWN INDICATION
     Dosage: 2 PER DAY
     Route: 048
     Dates: start: 20101201, end: 20110625
  4. SIMVASTATIN [Concomitant]
     Route: 065
  5. FUROSEMIDE [Concomitant]
     Route: 065
  6. ACETYLSALICYLIC ACID SRT [Concomitant]
     Route: 065
  7. NORVASC [Concomitant]
     Route: 065
  8. CITALOPRAM HYDROBROMIDE [Concomitant]
     Route: 065
     Dates: start: 20071001, end: 20110601
  9. OLMESARTAN MEDOXOMIL [Concomitant]
     Route: 065
  10. LEIODERM [Concomitant]
     Route: 065
  11. BERLTHYROX [Concomitant]
     Route: 065
  12. OMEPRAZOLE [Concomitant]
     Route: 065

REACTIONS (6)
  - RHABDOMYOLYSIS [None]
  - RENAL FAILURE [None]
  - DYSARTHRIA [None]
  - ANAEMIA [None]
  - SOMNOLENCE [None]
  - RESTLESSNESS [None]
